FAERS Safety Report 4342504-6 (Version None)
Quarter: 2004Q2

REPORT INFORMATION
  Report Type: 
  Country: None (occurrence: None)
  Receive Date: 20040421
  Receipt Date: 20040416
  Transmission Date: 20050107
  Serious: Yes (Hospitalization)
  Sender: FDA-Public Use
  Company Number: CA-BRISTOL-MYERS SQUIBB COMPANY-12562856

PATIENT
  Age: 57 Year
  Sex: Male

DRUGS (3)
  1. TEQUIN [Suspect]
     Indication: PNEUMONIA
     Route: 048
     Dates: start: 20030916, end: 20030916
  2. METFORMIN HCL [Concomitant]
     Indication: DIABETES MELLITUS
     Dosage: INTERRUPTED ON 17-SEP-2003, THEN RESTARTED ON 19-SEP-2003
  3. GLYBURIDE [Concomitant]
     Indication: DIABETES MELLITUS
     Dosage: INTERRUPTED ON 17-SEP-2003, RESTARTED ON 19-SEP-2003

REACTIONS (1)
  - HYPOGLYCAEMIA [None]
